FAERS Safety Report 5367945-X (Version None)
Quarter: 2007Q2

REPORT INFORMATION
  Report Type: 
  Country: None (occurrence: None)
  Receive Date: 20070622
  Receipt Date: 20070612
  Transmission Date: 20071010
  Serious: Yes (Death, Hospitalization)
  Sender: FDA-Public Use
  Company Number: AU-PFIZER INC-2007035551

PATIENT
  Sex: Female

DRUGS (5)
  1. SUTENT [Suspect]
     Indication: METASTATIC RENAL CELL CARCINOMA
     Route: 048
     Dates: start: 20070322, end: 20070411
  2. MERSYNDOL [Suspect]
     Indication: PAIN
     Route: 048
  3. CYCLIZINE [Suspect]
     Indication: NAUSEA
     Dosage: TEXT:25MG/50MG
     Route: 048
  4. AMITRIPTYLINE HCL [Suspect]
     Indication: INSOMNIA
     Route: 048
  5. COLOXYL WITH SENNA [Concomitant]
     Route: 048

REACTIONS (4)
  - CACHEXIA [None]
  - CONFUSIONAL STATE [None]
  - DYSPNOEA [None]
  - PNEUMONIA [None]
